FAERS Safety Report 11051886 (Version 2)
Quarter: 2015Q2

REPORT INFORMATION
  Report Type: Spontaneous
  Country: NL (occurrence: NL)
  Receive Date: 20150421
  Receipt Date: 20150515
  Transmission Date: 20150821
  Serious: Yes (Death, Hospitalization)
  Sender: FDA-Public Use
  Company Number: NL-PFIZER INC-2015132359

PATIENT
  Age: 83 Year
  Sex: Female

DRUGS (5)
  1. PARACETAMOL [Concomitant]
     Active Substance: ACETAMINOPHEN
  2. OXYCODON [Concomitant]
     Active Substance: OXYCODONE
  3. METOCLOPRAMIDE. [Concomitant]
     Active Substance: METOCLOPRAMIDE
  4. SOMAVERT [Suspect]
     Active Substance: PEGVISOMANT
     Indication: ACROMEGALY
     Dosage: 20 MG, 1X/DAY
     Route: 058
     Dates: start: 20110216, end: 20150414
  5. ASCAL /00800002/ [Concomitant]
     Dosage: 80 MG, UNK

REACTIONS (3)
  - Pneumonia [Fatal]
  - Intestinal haemorrhage [Fatal]
  - Subarachnoid haemorrhage [Fatal]
